FAERS Safety Report 19972555 (Version 1)
Quarter: 2021Q4

REPORT INFORMATION
  Report Type: Spontaneous
  Country: US (occurrence: US)
  Receive Date: 20211019
  Receipt Date: 20211019
  Transmission Date: 20220303
  Serious: No
  Sender: FDA-Public Use
  Company Number: US-BOEHRINGERINGELHEIM-2021-BI-133473

PATIENT
  Age: 83 Year
  Sex: Male

DRUGS (2)
  1. STIOLTO RESPIMAT [Suspect]
     Active Substance: OLODATEROL HYDROCHLORIDE\TIOTROPIUM BROMIDE MONOHYDRATE
     Indication: Chronic obstructive pulmonary disease
     Dosage: 1 SPRAY YESTERDAY AND 2 SPRAYS TODAY;?INHALATION SPRAY
     Dates: start: 20211018
  2. SPIRIVA RESPIMAT [Suspect]
     Active Substance: TIOTROPIUM BROMIDE
     Indication: Chronic obstructive pulmonary disease
     Dosage: 2 SPRAYS A DAY;?INHALATION SPRAY
     Dates: start: 2011

REACTIONS (6)
  - Extra dose administered [Recovered/Resolved]
  - Dizziness [Recovering/Resolving]
  - Dizziness [Recovering/Resolving]
  - Chest discomfort [Recovering/Resolving]
  - Cough [Recovering/Resolving]
  - Dysphonia [Recovering/Resolving]

NARRATIVE: CASE EVENT DATE: 20211018
